FAERS Safety Report 19503580 (Version 9)
Quarter: 2022Q3

REPORT INFORMATION
  Report Type: Report from Study
  Country: US (occurrence: US)
  Receive Date: 20210707
  Receipt Date: 20220906
  Transmission Date: 20221027
  Serious: Yes (Hospitalization, Other)
  Sender: FDA-Public Use
  Company Number: US-BAYER-2021-157066

PATIENT
  Age: 70 Year
  Sex: Male

DRUGS (9)
  1. STIVARGA [Suspect]
     Active Substance: REGORAFENIB
     Indication: Rectal cancer
     Dosage: 80 MG, QD FOR 21 DAYS ON, 7 DAYS OFF
     Route: 048
     Dates: start: 20210604
  2. STIVARGA [Suspect]
     Active Substance: REGORAFENIB
     Indication: Rectal cancer
     Dosage: 120 MG, QD FOR 21 DAYS ON, 7 DAYS OFF
     Route: 048
  3. STIVARGA [Suspect]
     Active Substance: REGORAFENIB
     Indication: Rectal cancer
     Dosage: 80MG 21 DAYS ON 7 DAYS OFF
     Dates: end: 20210907
  4. LONSURF [Suspect]
     Active Substance: TIPIRACIL HYDROCHLORIDE\TRIFLURIDINE
     Indication: Rectal cancer
     Dosage: 70 MG, BID
     Route: 048
     Dates: start: 20210317
  5. LONSURF [Suspect]
     Active Substance: TIPIRACIL HYDROCHLORIDE\TRIFLURIDINE
     Indication: Metastases to liver
     Dosage: 20 MG, BID
     Route: 048
     Dates: end: 20210504
  6. AVASTIN [Suspect]
     Active Substance: BEVACIZUMAB
     Indication: Product used for unknown indication
     Dosage: UNK
  7. OXALOBACT [Concomitant]
     Dosage: UNK
  8. ATIVAN [Concomitant]
     Active Substance: LORAZEPAM
     Dosage: UNK
  9. PRILOSEC [Concomitant]
     Active Substance: OMEPRAZOLE MAGNESIUM

REACTIONS (31)
  - Metastases to liver [None]
  - Haematochezia [None]
  - Constipation [Unknown]
  - Abdominal pain upper [Recovering/Resolving]
  - Drug ineffective [None]
  - Skin ulcer [None]
  - Rectal cancer [None]
  - Neuropathy peripheral [Unknown]
  - Blood pressure increased [Recovered/Resolved]
  - Diarrhoea [Recovered/Resolved]
  - Headache [Unknown]
  - Oral pain [None]
  - Dysphonia [Not Recovered/Not Resolved]
  - Feeling abnormal [Unknown]
  - Hyperaesthesia [Unknown]
  - Pain in extremity [Unknown]
  - Gait disturbance [Unknown]
  - Erythema [Unknown]
  - Dermatitis [Unknown]
  - Skin discolouration [Unknown]
  - Dyspepsia [Unknown]
  - Vomiting [Unknown]
  - Nausea [Unknown]
  - Off label use [None]
  - Drug intolerance [None]
  - Tooth extraction [None]
  - Malaise [Unknown]
  - Gait inability [Unknown]
  - Constipation [None]
  - Abdominal discomfort [None]
  - Abdominal pain [None]

NARRATIVE: CASE EVENT DATE: 20210604
